FAERS Safety Report 19769763 (Version 1)
Quarter: 2021Q3

REPORT INFORMATION
  Report Type: Spontaneous
  Country: CA (occurrence: CA)
  Receive Date: 20210831
  Receipt Date: 20210831
  Transmission Date: 20211014
  Serious: Yes (Other)
  Sender: FDA-Public Use
  Company Number: CA-PFIZER INC-202101069952

PATIENT
  Age: 3 Year
  Sex: Male

DRUGS (2)
  1. GENOTROPIN [Suspect]
     Active Substance: SOMATROPIN
     Indication: SMALL FOR DATES BABY
     Dosage: 350 UG, 1X/DAY
     Route: 058
     Dates: start: 20191004
  2. GENOTROPIN [Suspect]
     Active Substance: SOMATROPIN
     Dosage: 200 UG, 1X/DAY
     Route: 058

REACTIONS (2)
  - Weight increased [Unknown]
  - Insulin-like growth factor increased [Unknown]
